FAERS Safety Report 17726476 (Version 3)
Quarter: 2020Q4

REPORT INFORMATION
  Report Type: Spontaneous
  Country: US (occurrence: US)
  Receive Date: 20200430
  Receipt Date: 20201216
  Transmission Date: 20210113
  Serious: No
  Sender: FDA-Public Use
  Company Number: US-TEVA-2020-US-1225031

PATIENT
  Sex: Male

DRUGS (13)
  1. SYNRIBO [Suspect]
     Active Substance: OMACETAXINE MEPESUCCINATE
     Indication: REMISSION NOT ACHIEVED
  2. TYLENOL [Concomitant]
     Active Substance: ACETAMINOPHEN
  3. SYNRIBO [Suspect]
     Active Substance: OMACETAXINE MEPESUCCINATE
     Indication: CHRONIC MYELOID LEUKAEMIA
     Route: 065
     Dates: start: 20180625
  4. HYDROXYUREA. [Concomitant]
     Active Substance: HYDROXYUREA
  5. SYNRIBO [Suspect]
     Active Substance: OMACETAXINE MEPESUCCINATE
     Indication: PHILADELPHIA CHROMOSOME POSITIVE
     Dosage: 5.6 MILLIGRAM DAILY; BID FOR 7 DAYS OF 28 DAY CYCLE
     Route: 058
     Dates: start: 20180622
  6. ZOFRAN [Concomitant]
     Active Substance: ONDANSETRON HYDROCHLORIDE
  7. ALLEGRA [Concomitant]
     Active Substance: FEXOFENADINE HYDROCHLORIDE
  8. METFORMIN HCL [Concomitant]
     Active Substance: METFORMIN HYDROCHLORIDE
  9. ICLUSIG [Concomitant]
     Active Substance: PONATINIB
  10. ALLOPURINOL. [Concomitant]
     Active Substance: ALLOPURINOL
  11. LIPITOR [Concomitant]
     Active Substance: ATORVASTATIN CALCIUM
  12. ASPIRIN. [Concomitant]
     Active Substance: ASPIRIN
  13. BIOTIN [Concomitant]
     Active Substance: BIOTIN

REACTIONS (4)
  - Abdominal pain upper [Unknown]
  - Pain [Unknown]
  - Migraine [Unknown]
  - Nausea [Recovered/Resolved]
